FAERS Safety Report 6826620-2 (Version None)
Quarter: 2010Q3

REPORT INFORMATION
  Report Type: 
  Country: None (occurrence: None)
  Receive Date: 20100709
  Receipt Date: 20100706
  Transmission Date: 20110219
  Serious: Yes (Hospitalization)
  Sender: FDA-Public Use
  Company Number: IT-PFIZER INC-2006154457

PATIENT
  Age: 54 Year
  Sex: Female
  Weight: 79 kg

DRUGS (6)
  1. SUNITINIB MALATE [Suspect]
     Indication: RENAL CELL CARCINOMA
     Dosage: 50 MG, 1X/DAY
     Route: 048
     Dates: start: 20061130
  2. TRIATEC [Concomitant]
     Dosage: UNK
     Route: 048
     Dates: start: 20000101
  3. LEVOTHYROXINE SODIUM [Concomitant]
     Dosage: UNK
     Route: 048
     Dates: start: 20020101
  4. CALCITRIOL [Concomitant]
     Dosage: UNK
     Route: 048
     Dates: start: 20020101
  5. ALLOPURINOL [Concomitant]
     Dosage: UNK
     Route: 048
     Dates: start: 20030101
  6. SEACOR [Concomitant]
     Dosage: UNK
     Route: 048

REACTIONS (1)
  - ATRIOVENTRICULAR BLOCK [None]
